FAERS Safety Report 15499275 (Version 6)
Quarter: 2019Q2

REPORT INFORMATION
  Report Type: Spontaneous
  Country: US (occurrence: US)
  Receive Date: 20181015
  Receipt Date: 20190502
  Transmission Date: 20190711
  Serious: Yes (Hospitalization, Other)
  Sender: FDA-Public Use
  Company Number: US-ELI_LILLY_AND_COMPANY-US201810003082

PATIENT
  Sex: Female

DRUGS (6)
  1. HUMALOG [Suspect]
     Active Substance: INSULIN LISPRO
     Indication: TYPE 2 DIABETES MELLITUS
     Dosage: UNK, UNKNOWN
     Route: 065
     Dates: start: 2018
  2. HUMALOG [Suspect]
     Active Substance: INSULIN LISPRO
     Dosage: 3 IU, TID
  3. INSULIN GLARGINE [Suspect]
     Active Substance: INSULIN GLARGINE
     Indication: TYPE 2 DIABETES MELLITUS
     Dosage: 25 IU, DAILY (AT NIGHT)
     Route: 065
     Dates: start: 2018
  4. INSULIN GLARGINE [Suspect]
     Active Substance: INSULIN GLARGINE
     Dosage: 5 IU, TID
     Route: 058
  5. HUMALOG [Suspect]
     Active Substance: INSULIN LISPRO
     Indication: PRODUCT USED FOR UNKNOWN INDICATION
     Dosage: UNK, UNKNOWN
     Route: 058
     Dates: start: 2017
  6. HUMALOG [Suspect]
     Active Substance: INSULIN LISPRO
     Dosage: 5 IU, TID

REACTIONS (16)
  - Hyperhidrosis [Unknown]
  - Muscular weakness [Unknown]
  - Tremor [Unknown]
  - Blood glucose decreased [Not Recovered/Not Resolved]
  - Blood glucose increased [Not Recovered/Not Resolved]
  - Blood glucose decreased [Unknown]
  - Blood glucose increased [Not Recovered/Not Resolved]
  - Visual impairment [Unknown]
  - Blood glucose increased [Not Recovered/Not Resolved]
  - Eye pain [Unknown]
  - Glycosylated haemoglobin increased [Unknown]
  - Wrong patient received product [Unknown]
  - Blindness [Unknown]
  - Eye haemorrhage [Unknown]
  - Retinal detachment [Unknown]
  - Thinking abnormal [Unknown]

NARRATIVE: CASE EVENT DATE: 201809
